FAERS Safety Report 5502844-1 (Version None)
Quarter: 2007Q4

REPORT INFORMATION
  Report Type: 
  Country: None (occurrence: None)
  Receive Date: 20071029
  Receipt Date: 20071023
  Transmission Date: 20080405
  Serious: Yes (Death)
  Sender: FDA-Public Use
  Company Number: 163-21880-07041089

PATIENT
  Age: 82 Year
  Sex: Male

DRUGS (1)
  1. REVLIMID [Suspect]
     Indication: MULTIPLE MYELOMA
     Dosage: 25 MG, Q 21 DAYS X 2 CYCLES, ORAL
     Route: 048
     Dates: start: 20060815

REACTIONS (2)
  - COLITIS ISCHAEMIC [None]
  - SEPSIS [None]
